FAERS Safety Report 14036424 (Version 1)
Quarter: 2017Q4

REPORT INFORMATION
  Report Type: Spontaneous
  Country: US (occurrence: US)
  Receive Date: 20171003
  Receipt Date: 20171003
  Transmission Date: 20180321
  Serious: No
  Sender: FDA-Public Use
  Company Number: US-ROCHE-1993773

PATIENT
  Sex: Male

DRUGS (1)
  1. OCREVUS [Suspect]
     Active Substance: OCRELIZUMAB
     Indication: MULTIPLE SCLEROSIS
     Dosage: ON DAY 15
     Route: 042

REACTIONS (4)
  - Headache [Unknown]
  - Temperature regulation disorder [Unknown]
  - Insomnia [Unknown]
  - Hyperhidrosis [Unknown]
